FAERS Safety Report 4649545-X (Version None)
Quarter: 2005Q2

REPORT INFORMATION
  Report Type: 
  Country: None (occurrence: None)
  Receive Date: 20050427
  Receipt Date: 20050419
  Transmission Date: 20051028
  Serious: Yes (Other)
  Sender: FDA-Public Use
  Company Number: 2005061432

PATIENT
  Age: 76 Year
  Sex: Male
  Weight: 80.7403 kg

DRUGS (4)
  1. LIPITOR [Suspect]
     Indication: BLOOD CHOLESTEROL ABNORMAL
     Dosage: 10 MG (10 MG, 1 IN 1 D), ORAL
     Route: 048
     Dates: end: 20050101
  2. METOPROLOL SUCCINATE [Concomitant]
  3. ASPIRIN [Concomitant]
  4. HYZAAR [Concomitant]

REACTIONS (3)
  - MUSCLE SPASMS [None]
  - POOR PERIPHERAL CIRCULATION [None]
  - TOOTH EXTRACTION [None]
